FAERS Safety Report 16340303 (Version 1)
Quarter: 2019Q2

REPORT INFORMATION
  Report Type: Report from Study
  Country: FR (occurrence: FR)
  Receive Date: 20190522
  Receipt Date: 20190522
  Transmission Date: 20190711
  Serious: Yes (Hospitalization)
  Sender: FDA-Public Use
  Company Number: FR-ROCHE-2320959

PATIENT
  Age: 54 Year
  Sex: Female
  Weight: 57 kg

DRUGS (3)
  1. VENETOCLAX. [Suspect]
     Active Substance: VENETOCLAX
     Indication: LYMPHOMA
     Dosage: DATE OF LAST DOSE OF VENTOCLAX ADMINISTRATION PRIOR TO SAE: 14/MAY/2019
     Route: 065
     Dates: start: 20181205
  2. OBINUTUZUMAB. [Suspect]
     Active Substance: OBINUTUZUMAB
     Indication: LYMPHOMA
     Dosage: DATE OF LAST DOSE OF OBINTUZUMAB ADMINISTRATION PRIOR TO SAE: 09/APR/2019
     Route: 065
     Dates: start: 20181128
  3. ATEZOLIZUMAB. [Suspect]
     Active Substance: ATEZOLIZUMAB
     Indication: LYMPHOMA
     Dosage: DATE OF LAST DOSE OF ATEZOLIZUMAB ADMINISTRATION PRIOR TO SAE: 31/JAN/2019
     Route: 042
     Dates: start: 20181129

REACTIONS (1)
  - Arthritis [Unknown]

NARRATIVE: CASE EVENT DATE: 20190414
